FAERS Safety Report 13277108 (Version 1)
Quarter: 2017Q1

REPORT INFORMATION
  Report Type: Spontaneous
  Country: US (occurrence: US)
  Receive Date: 20170228
  Receipt Date: 20170228
  Transmission Date: 20170428
  Serious: Yes (Life-Threatening, Disabling, Other)
  Sender: FDA-Public Use
  Company Number: None

PATIENT
  Sex: Male
  Weight: 1.32 kg

DRUGS (1)
  1. PRAVASTATIN 20 MG TAB [Suspect]
     Active Substance: PRAVASTATIN SODIUM
     Dosage: 1 PILLS A DAY 1 PILLS A DAY BY MOUTH
     Route: 048
     Dates: start: 2015

REACTIONS (2)
  - Pain [None]
  - Gynaecomastia [None]

NARRATIVE: CASE EVENT DATE: 2015
